FAERS Safety Report 20903036 (Version 1)
Quarter: 2022Q2

REPORT INFORMATION
  Report Type: Spontaneous
  Country: GR (occurrence: GR)
  Receive Date: 20220601
  Receipt Date: 20220601
  Transmission Date: 20220720
  Serious: No
  Sender: FDA-Public Use
  Company Number: GR-PFIZER INC-202200522084

PATIENT
  Age: 63 Year
  Sex: Male

DRUGS (1)
  1. PAXLOVID [Suspect]
     Active Substance: NIRMATRELVIR\RITONAVIR
     Indication: COVID-19
     Dosage: UNK, 2X/DAY
     Dates: start: 20220401

REACTIONS (12)
  - Disease recurrence [Unknown]
  - COVID-19 [Unknown]
  - Incorrect dose administered [Unknown]
  - Off label use [Unknown]
  - Incorrect product administration duration [Unknown]
  - Vomiting [Recovered/Resolved]
  - Hypoglycaemia [Recovered/Resolved]
  - Blood glucose increased [Recovered/Resolved]
  - Diarrhoea [Recovered/Resolved]
  - Skin discolouration [Recovered/Resolved]
  - Faeces discoloured [Recovered/Resolved]
  - Tremor [Recovered/Resolved]

NARRATIVE: CASE EVENT DATE: 20220406
